FAERS Safety Report 10659561 (Version 1)
Quarter: 2014Q4

REPORT INFORMATION
  Report Type: Spontaneous
  Country: US (occurrence: US)
  Receive Date: 20141217
  Receipt Date: 20141217
  Transmission Date: 20150529
  Serious: No
  Sender: FDA-Public Use
  Company Number: US-GLAXOSMITHKLINE-US2014020013

PATIENT
  Sex: Female

DRUGS (1)
  1. NICOTINE UNKNOWN BRAND COMPRESSED LOZENGE [Suspect]
     Active Substance: NICOTINE
     Indication: SMOKING CESSATION THERAPY
     Dosage: UNK
     Route: 002

REACTIONS (1)
  - Dyspepsia [Recovered/Resolved]
